FAERS Safety Report 14432213 (Version 2)
Quarter: 2018Q1

REPORT INFORMATION
  Report Type: Report from Study
  Country: FR (occurrence: FR)
  Receive Date: 20180124
  Receipt Date: 20180205
  Transmission Date: 20180509
  Serious: Yes (Life-Threatening, Hospitalization, Other)
  Sender: FDA-Public Use
  Company Number: FR-BRISTOL-MYERS SQUIBB COMPANY-BMS-2018-004408

PATIENT
  Age: 66 Year
  Sex: Female
  Weight: 56 kg

DRUGS (1)
  1. NIVOLUMAB [Suspect]
     Active Substance: NIVOLUMAB
     Indication: SQUAMOUS CELL CARCINOMA OF HEAD AND NECK
     Dosage: 168 MG,
     Route: 042

REACTIONS (1)
  - Traumatic haemothorax [Recovered/Resolved]

NARRATIVE: CASE EVENT DATE: 20180115
